FAERS Safety Report 6493796-9 (Version None)
Quarter: 2009Q4

REPORT INFORMATION
  Report Type: 
  Country: None (occurrence: None)
  Receive Date: 20091214
  Receipt Date: 20081223
  Transmission Date: 20100525
  Serious: Yes (Other)
  Sender: FDA-Public Use
  Company Number: US-BRISTOL-MYERS SQUIBB COMPANY-14394282

PATIENT
  Age: 61 Year
  Sex: Female

DRUGS (12)
  1. ABILIFY [Suspect]
     Indication: DEPRESSION
     Route: 048
     Dates: start: 20030122
  2. LYRICA [Suspect]
     Indication: BURNING MOUTH SYNDROME
     Dates: start: 20060621
  3. GEODON [Suspect]
     Indication: DEPRESSION
     Dosage: TAKEN FOR ABOUT 1 YR
     Route: 048
     Dates: start: 20050101
  4. RISPERDAL [Suspect]
     Dosage: 2MG AT HS
     Dates: start: 20020508
  5. EVOXAC [Concomitant]
  6. LEXAPRO [Concomitant]
  7. DEXTROSTAT [Concomitant]
  8. ADVAIR DISKUS 100/50 [Concomitant]
  9. ATIVAN [Concomitant]
  10. ZOLPIDEM [Concomitant]
  11. PROZAC [Concomitant]
  12. STELAZINE [Concomitant]

REACTIONS (8)
  - BURNING MOUTH SYNDROME [None]
  - DRY MOUTH [None]
  - FALL [None]
  - GLOSSITIS [None]
  - HYPERKERATOSIS [None]
  - PARAKERATOSIS [None]
  - TARDIVE DYSKINESIA [None]
  - ULCER [None]
